FAERS Safety Report 19802006 (Version 1)
Quarter: 2021Q3

REPORT INFORMATION
  Report Type: Spontaneous
  Country: JP (occurrence: JP)
  Receive Date: 20210908
  Receipt Date: 20210908
  Transmission Date: 20211014
  Serious: Yes (Other)
  Sender: FDA-Public Use
  Company Number: JP-ROCHE-2905880

PATIENT
  Age: 8 Decade

DRUGS (3)
  1. GIMERACIL;OTERACIL POTASSIUM;TEGAFUR [Concomitant]
     Active Substance: GIMERACIL\OTERACIL\TEGAFUR
     Indication: HER2 POSITIVE GASTRIC CANCER
     Route: 048
  2. HERCEPTIN [Suspect]
     Active Substance: TRASTUZUMAB
     Indication: HER2 POSITIVE GASTRIC CANCER
     Route: 041
     Dates: start: 20210412
  3. OXALIPLATIN. [Suspect]
     Active Substance: OXALIPLATIN
     Indication: HER2 POSITIVE GASTRIC CANCER
     Route: 041
     Dates: start: 20210412

REACTIONS (1)
  - Cytopenia [Unknown]
